FAERS Safety Report 8826214 (Version 1)
Quarter: 2012Q4

REPORT INFORMATION
  Report Type: 
  Country: US (occurrence: US)
  Receive Date: 20121005
  Receipt Date: 20121005
  Transmission Date: 20130627
  Serious: Yes (Other)
  Sender: FDA-Public Use
  Company Number: US-NOVOPROD-361310

PATIENT
  Age: 71 Year
  Sex: Female

DRUGS (2)
  1. VICTOZA [Suspect]
     Indication: PRODUCT USED FOR UNKNOWN INDICATION
     Dosage: 1.8 mg, qd
     Route: 058
  2. VICTOZA [Suspect]
     Dosage: 1.2 mg, qd
     Route: 058

REACTIONS (2)
  - Lipase increased [Unknown]
  - Glomerular filtration rate abnormal [Unknown]
